FAERS Safety Report 10067638 (Version 1)
Quarter: 2014Q2

REPORT INFORMATION
  Report Type: Spontaneous
  Country: US (occurrence: US)
  Receive Date: 20140409
  Receipt Date: 20140409
  Transmission Date: 20141212
  Serious: No
  Sender: FDA-Public Use
  Company Number: US-MYLANLABS-2014S1002051

PATIENT
  Age: 85 Year
  Sex: Female
  Weight: 54.43 kg

DRUGS (2)
  1. IBANDRONATE SODIUM TABLETS [Suspect]
     Indication: OSTEOPOROSIS
     Route: 048
     Dates: start: 201308, end: 20140116
  2. LISINOPRIL [Concomitant]

REACTIONS (3)
  - Pain in jaw [Not Recovered/Not Resolved]
  - Aphagia [Not Recovered/Not Resolved]
  - Weight decreased [Not Recovered/Not Resolved]
